FAERS Safety Report 7597081-3 (Version None)
Quarter: 2011Q3

REPORT INFORMATION
  Report Type: 
  Country: None (occurrence: None)
  Receive Date: 20110708
  Receipt Date: 20110629
  Transmission Date: 20111222
  Serious: Yes (Hospitalization, Other)
  Sender: FDA-Public Use
  Company Number: US-AMGEN-USASP2011033307

PATIENT
  Sex: Female

DRUGS (11)
  1. TORSEMIDE [Concomitant]
     Dosage: 1 MG, QD
  2. FERROUS GLUCONATE [Concomitant]
     Dosage: 1 MG, QD
  3. NORVASC [Concomitant]
     Dosage: 1 MG, QD
  4. HYDRALAZINE HCL [Concomitant]
     Dosage: 4 MG, QD
  5. ASPIRIN [Concomitant]
     Dosage: 1 MG, QD
  6. LABETALOL HCL [Concomitant]
     Dosage: D
  7. ARANESP [Suspect]
     Indication: RENAL FAILURE CHRONIC
     Dosage: 60 A?G, Q2WK
     Dates: start: 20110501
  8. IMDUR [Concomitant]
     Dosage: 1 MG, QD
  9. LEVOTHYROXINE SODIUM [Concomitant]
     Dosage: 1 A?G, QD
  10. METOLAZONE [Concomitant]
     Dosage: 1 MG, QD
  11. PAXIL [Concomitant]
     Dosage: 1 MG, QD

REACTIONS (3)
  - DRUG INEFFECTIVE [None]
  - HOSPITALISATION [None]
  - INCORRECT STORAGE OF DRUG [None]
